FAERS Safety Report 12553727 (Version 2)
Quarter: 2016Q4

REPORT INFORMATION
  Report Type: Spontaneous
  Country: US (occurrence: US)
  Receive Date: 20160713
  Receipt Date: 20161206
  Transmission Date: 20170207
  Serious: Yes (Other)
  Sender: FDA-Public Use
  Company Number: US-NOVOPROD-496390

PATIENT
  Age: 47 Year
  Sex: Female

DRUGS (1)
  1. SAXENDA [Suspect]
     Active Substance: LIRAGLUTIDE
     Indication: WEIGHT DECREASED
     Dosage: 3 MG, QD
     Route: 058
     Dates: start: 201603, end: 201605

REACTIONS (3)
  - Vomiting [Unknown]
  - Nausea [Unknown]
  - Gallbladder pain [Not Recovered/Not Resolved]

NARRATIVE: CASE EVENT DATE: 2016
